FAERS Safety Report 19604366 (Version 1)
Quarter: 2021Q3

REPORT INFORMATION
  Report Type: Spontaneous
  Country: US (occurrence: US)
  Receive Date: 20210724
  Receipt Date: 20210724
  Transmission Date: 20211014
  Serious: No
  Sender: FDA-Public Use
  Company Number: US-ELI_LILLY_AND_COMPANY-US202107009961

PATIENT
  Sex: Female

DRUGS (1)
  1. EMGALITY [Suspect]
     Active Substance: GALCANEZUMAB-GNLM
     Indication: MIGRAINE
     Dosage: 240 MG, SINGLE (LOADING DOSE)
     Route: 065
     Dates: start: 20210630

REACTIONS (10)
  - Migraine [Unknown]
  - Irritability [Unknown]
  - Headache [Unknown]
  - Ocular discomfort [Unknown]
  - Discomfort [Unknown]
  - Head discomfort [Unknown]
  - Thinking abnormal [Unknown]
  - Nasopharyngitis [Unknown]
  - Rhinorrhoea [Unknown]
  - Hypersensitivity [Unknown]
